FAERS Safety Report 13502037 (Version 2)
Quarter: 2017Q2

REPORT INFORMATION
  Report Type: Spontaneous
  Country: JP (occurrence: JP)
  Receive Date: 20170502
  Receipt Date: 20170519
  Transmission Date: 20170830
  Serious: Yes (Hospitalization, Other)
  Sender: FDA-Public Use
  Company Number: JP-ROCHE-1926010

PATIENT
  Age: 89 Year
  Sex: Female

DRUGS (1)
  1. BONVIVA [Suspect]
     Active Substance: IBANDRONATE SODIUM
     Indication: OSTEOPOROSIS
     Route: 042
     Dates: start: 201407, end: 20150423

REACTIONS (4)
  - Femur fracture [Unknown]
  - Pain [Unknown]
  - Atypical femur fracture [Recovering/Resolving]
  - Gait disturbance [Unknown]
